FAERS Safety Report 9981275 (Version 3)
Quarter: 2014Q2

REPORT INFORMATION
  Report Type: Spontaneous
  Country: IT (occurrence: IT)
  Receive Date: 20140307
  Receipt Date: 20140425
  Transmission Date: 20141212
  Serious: Yes (Life-Threatening)
  Sender: FDA-Public Use
  Company Number: IT-009507513-1403ITA001979

PATIENT
  Age: 68 Year
  Sex: Female

DRUGS (3)
  1. TIENAM 500 MG+500 MG POLVERE PER SOLUZIONE PER INFUSIONE [Suspect]
     Indication: ACUTE DISSEMINATED ENCEPHALOMYELITIS
     Dosage: 500MG+500MG 3 DOSE (UNIT) DAILY
     Route: 042
     Dates: start: 20140125, end: 20140207
  2. FLUOXETIN [Concomitant]
  3. LANSOPRAZOLE [Concomitant]

REACTIONS (1)
  - Anaemia [Recovering/Resolving]
